FAERS Safety Report 6574432-X (Version None)
Quarter: 2010Q1

REPORT INFORMATION
  Report Type: 
  Country: None (occurrence: None)
  Receive Date: 20100209
  Receipt Date: 20091208
  Transmission Date: 20100710
  Serious: Yes (Disabling)
  Sender: FDA-Public Use
  Company Number: A0834131A

PATIENT
  Age: 40 Year
  Sex: Female

DRUGS (3)
  1. PAROXETINE HCL [Suspect]
     Indication: PANIC DISORDER
     Route: 048
  2. CLONAZEPAM [Concomitant]
  3. PROZAC [Concomitant]

REACTIONS (2)
  - PANIC ATTACK [None]
  - RESTLESSNESS [None]
